FAERS Safety Report 16849222 (Version 1)
Quarter: 2019Q3

REPORT INFORMATION
  Report Type: Spontaneous
  Country: DE (occurrence: DE)
  Receive Date: 20190925
  Receipt Date: 20190925
  Transmission Date: 20191005
  Serious: Yes (Other)
  Sender: FDA-Public Use
  Company Number: DE-DRREDDYS-GER/GER/19/0114361

PATIENT
  Sex: Male

DRUGS (7)
  1. OXALIPLATIN. [Concomitant]
     Active Substance: OXALIPLATIN
     Indication: COLON CANCER
     Dosage: ADJUVANT FOLFOX THERAPY
     Route: 065
  2. FLUOROURACIL. [Concomitant]
     Active Substance: FLUOROURACIL
     Indication: COLON CANCER
     Dosage: ADJUVANT FOLFOX THERAPY
     Route: 065
  3. IMATINIB. [Suspect]
     Active Substance: IMATINIB MESYLATE
     Dosage: 400 MILLIGRAM DAILY;
     Route: 065
     Dates: start: 2004
  4. IMATINIB. [Suspect]
     Active Substance: IMATINIB MESYLATE
     Indication: CHRONIC MYELOID LEUKAEMIA
     Dosage: 600 MILLIGRAM DAILY; DOSE INCREASED
     Route: 065
  5. DASATINIB. [Concomitant]
     Active Substance: DASATINIB
     Indication: CHRONIC MYELOID LEUKAEMIA
     Route: 065
  6. NILOTINIB [Concomitant]
     Active Substance: NILOTINIB
     Indication: CHRONIC MYELOID LEUKAEMIA
     Route: 065
     Dates: start: 2016
  7. FOLINIC-ACID [Concomitant]
     Active Substance: LEUCOVORIN
     Indication: COLON CANCER
     Dosage: ADJUVANT FOLFOX THERAPY
     Route: 065

REACTIONS (5)
  - Prostate cancer [Recovered/Resolved]
  - Pleural effusion [Unknown]
  - B-cell small lymphocytic lymphoma [Recovered/Resolved]
  - Rectosigmoid cancer [Recovered/Resolved]
  - Metastases to liver [Recovering/Resolving]

NARRATIVE: CASE EVENT DATE: 2013
